FAERS Safety Report 16377885 (Version 1)
Quarter: 2019Q2

REPORT INFORMATION
  Report Type: Report from Study
  Country: US (occurrence: US)
  Receive Date: 20190531
  Receipt Date: 20190531
  Transmission Date: 20190711
  Serious: Yes (Hospitalization)
  Sender: FDA-Public Use
  Company Number: US-JNJFOC-20190541605

PATIENT
  Age: 34 Year
  Sex: Female
  Weight: 64.4 kg

DRUGS (5)
  1. LENALIDOMIDE [Suspect]
     Active Substance: LENALIDOMIDE
     Indication: PRODUCT USED FOR UNKNOWN INDICATION
     Route: 065
  2. IBRUTINIB [Suspect]
     Active Substance: IBRUTINIB
     Indication: HODGKIN^S DISEASE
     Route: 048
     Dates: start: 20180322, end: 20190517
  3. NIVOLUMAB [Suspect]
     Active Substance: NIVOLUMAB
     Indication: HODGKIN^S DISEASE
     Dosage: Q12 WEEKS
     Route: 042
     Dates: start: 20180322, end: 20190425
  4. METFORMIN [Concomitant]
     Active Substance: METFORMIN HYDROCHLORIDE
     Route: 048
     Dates: start: 201610
  5. LEVOCETIRIZINE DIHYDROCHLORIDE. [Concomitant]
     Active Substance: LEVOCETIRIZINE DIHYDROCHLORIDE
     Dosage: PRN
     Route: 048
     Dates: start: 201603

REACTIONS (3)
  - Urinary tract infection [Recovering/Resolving]
  - Pericardial effusion [Recovering/Resolving]
  - Sepsis [Recovering/Resolving]

NARRATIVE: CASE EVENT DATE: 20190511
